FAERS Safety Report 17000059 (Version 1)
Quarter: 2019Q4

REPORT INFORMATION
  Report Type: Spontaneous
  Country: JP (occurrence: JP)
  Receive Date: 20191106
  Receipt Date: 20191106
  Transmission Date: 20200122
  Serious: Yes (Death, Hospitalization, Other)
  Sender: FDA-Public Use
  Company Number: JP-SHIRE-JP201936962AA

PATIENT
  Age: 4 Year
  Sex: Female

DRUGS (2)
  1. GAMMAGARD S/D [Suspect]
     Active Substance: HUMAN IMMUNOGLOBULIN G
     Indication: ENCEPHALOPATHY
  2. GAMMAGARD S/D [Suspect]
     Active Substance: HUMAN IMMUNOGLOBULIN G
     Indication: SHOCK HAEMORRHAGIC
     Dosage: UNK
     Route: 065

REACTIONS (8)
  - Brain oedema [Unknown]
  - Oliguria [Unknown]
  - Multiple organ dysfunction syndrome [Unknown]
  - Death [Fatal]
  - Intracranial pressure increased [Unknown]
  - Pupils unequal [Unknown]
  - Acute kidney injury [Unknown]
  - Circulatory collapse [Unknown]
